FAERS Safety Report 4432852-3 (Version None)
Quarter: 2004Q3

REPORT INFORMATION
  Report Type: 
  Country: None (occurrence: None)
  Receive Date: 20040823
  Receipt Date: 20040818
  Transmission Date: 20050211
  Serious: Yes (Other)
  Sender: FDA-Public Use
  Company Number: 200410808BVD

PATIENT

DRUGS (1)
  1. AVELOX [Suspect]

REACTIONS (1)
  - TEMPORAL ARTERITIS [None]
